FAERS Safety Report 7748233-0 (Version None)
Quarter: 2011Q3

REPORT INFORMATION
  Report Type: 
  Country: None (occurrence: None)
  Receive Date: 20110913
  Receipt Date: 20110706
  Transmission Date: 20111222
  Serious: Yes (Hospitalization, Other)
  Sender: FDA-Public Use
  Company Number: US-ELI_LILLY_AND_COMPANY-US201107002791

PATIENT
  Sex: Female
  Weight: 59.41 kg

DRUGS (1)
  1. CYMBALTA [Suspect]
     Dosage: 60 MG, QD
     Route: 048
     Dates: start: 20110615, end: 20110707

REACTIONS (1)
  - HEPATOTOXICITY [None]
